FAERS Safety Report 10301666 (Version 1)
Quarter: 2014Q3

REPORT INFORMATION
  Report Type: Report from Study
  Country: TN (occurrence: TN)
  Receive Date: 20140714
  Receipt Date: 20140714
  Transmission Date: 20150326
  Serious: Yes (Death)
  Sender: FDA-Public Use
  Company Number: TN-SA-2014SA089649

PATIENT
  Age: 86 Year
  Sex: Female

DRUGS (7)
  1. ASPEGIC [Concomitant]
     Active Substance: ASPIRIN DL-LYSINE
     Route: 048
  2. CORVASAL [Concomitant]
     Active Substance: LINSIDOMINE
     Route: 048
  3. LIPANTHYL [Concomitant]
     Active Substance: FENOFIBRATE
     Route: 048
  4. PLAVIX [Suspect]
     Active Substance: CLOPIDOGREL BISULFATE
     Indication: CORONARY ARTERY DISEASE
     Route: 048
     Dates: start: 20131001, end: 20140111
  5. VITAMINS [Concomitant]
     Active Substance: VITAMINS
     Route: 048
  6. ISOPHANE INSULIN [Concomitant]
     Active Substance: INSULIN NOS
     Route: 058
  7. FLUDEX [Concomitant]
     Active Substance: INDAPAMIDE
     Route: 048

REACTIONS (1)
  - General physical health deterioration [Fatal]

NARRATIVE: CASE EVENT DATE: 201401
